FAERS Safety Report 16295016 (Version 1)
Quarter: 2019Q2

REPORT INFORMATION
  Report Type: Spontaneous
  Country: US (occurrence: US)
  Receive Date: 20190509
  Receipt Date: 20190509
  Transmission Date: 20190711
  Serious: No
  Sender: FDA-Public Use
  Company Number: US-ROCHE-2218560

PATIENT
  Sex: Male

DRUGS (4)
  1. ESBRIET [Suspect]
     Active Substance: PIRFENIDONE
     Indication: IDIOPATHIC PULMONARY FIBROSIS
     Route: 065
  2. ESBRIET [Suspect]
     Active Substance: PIRFENIDONE
     Dosage: 2 TAB 3 TIMES DAILY
     Route: 065
  3. ESBRIET [Suspect]
     Active Substance: PIRFENIDONE
     Dosage: 3 TAB 3 TIMES DAILY
     Route: 065
  4. ESOMEPRAZOLE. [Concomitant]
     Active Substance: ESOMEPRAZOLE MAGNESIUM
     Route: 065

REACTIONS (2)
  - Dyspepsia [Not Recovered/Not Resolved]
  - Decreased appetite [Not Recovered/Not Resolved]
